FAERS Safety Report 26000454 (Version 1)
Quarter: 2025Q4

REPORT INFORMATION
  Report Type: Spontaneous
  Country: US (occurrence: US)
  Receive Date: 20251105
  Receipt Date: 20251105
  Transmission Date: 20260118
  Serious: No
  Sender: ANI
  Company Number: US-ANIPHARMA-2025-US-038961

PATIENT
  Age: 53 Year
  Sex: Female

DRUGS (5)
  1. CORTICOTROPIN [Suspect]
     Active Substance: CORTICOTROPIN
     Indication: Myositis
     Dosage: 80 UNITS TWICE WEEKLY
     Route: 058
  2. BACLOFEN [Concomitant]
     Active Substance: BACLOFEN
  3. FAMOTIDINE [Concomitant]
     Active Substance: FAMOTIDINE
  4. METHOTREXATE SODIUM [Concomitant]
     Active Substance: METHOTREXATE SODIUM
  5. FOLIC ACID [Concomitant]
     Active Substance: FOLIC ACID

REACTIONS (1)
  - Pain [Not Recovered/Not Resolved]
